FAERS Safety Report 9874047 (Version 2)
Quarter: 2014Q1

REPORT INFORMATION
  Report Type: Spontaneous
  Country: US (occurrence: US)
  Receive Date: 20140206
  Receipt Date: 20140206
  Transmission Date: 20141002
  Serious: No
  Sender: FDA-Public Use
  Company Number: US-ACORDA-ACO_34560_2013

PATIENT
  Sex: Male
  Weight: 96.15 kg

DRUGS (10)
  1. AMPYRA [Suspect]
     Indication: BALANCE DISORDER
     Dosage: 10 MG, QD
     Route: 048
     Dates: start: 2012
  2. TYSABRI [Suspect]
     Indication: MULTIPLE SCLEROSIS
     Dosage: 300 MG, MONTHLY
     Route: 042
     Dates: start: 20050210, end: 2006
  3. TYSABRI [Suspect]
     Dosage: UNK
     Dates: start: 20061121, end: 20120702
  4. TYSABRI [Suspect]
     Dosage: UNK
  5. GILENYA [Concomitant]
     Indication: MULTIPLE SCLEROSIS
     Dosage: 0.5 DAILY
     Route: 048
     Dates: start: 201202
  6. LYRICA [Concomitant]
     Indication: PRODUCT USED FOR UNKNOWN INDICATION
     Dosage: 75 QHS DAILY
     Route: 048
     Dates: start: 2005
  7. DETROL [Concomitant]
     Indication: INCONTINENCE
     Dosage: 5 MG, QD
     Route: 048
     Dates: start: 2011
  8. ALLEGRA [Concomitant]
     Indication: HYPERSENSITIVITY
  9. AMLODIPINE [Concomitant]
     Indication: HYPERTENSION
  10. BENAZEPRIL HCL [Concomitant]
     Indication: HYPERTENSION

REACTIONS (6)
  - Fall [Recovered/Resolved]
  - Walking aid user [Unknown]
  - JC virus test positive [Unknown]
  - Balance disorder [Recovered/Resolved]
  - Drug effect decreased [Unknown]
  - Asthenia [Recovered/Resolved]
